FAERS Safety Report 19707497 (Version 2)
Quarter: 2021Q3

REPORT INFORMATION
  Report Type: Spontaneous
  Country: GB (occurrence: GB)
  Receive Date: 20210817
  Receipt Date: 20210825
  Transmission Date: 20211014
  Serious: Yes (Other)
  Sender: FDA-Public Use
  Company Number: GB-TEVA-2021-GB-1942997

PATIENT
  Age: 49 Year
  Sex: Female

DRUGS (8)
  1. BRINZOLAMIDE [Suspect]
     Active Substance: BRINZOLAMIDE
     Indication: PRODUCT USED FOR UNKNOWN INDICATION
     Dosage: UNK
     Route: 065
  2. RAMIPRIL. [Suspect]
     Active Substance: RAMIPRIL
     Indication: PRODUCT USED FOR UNKNOWN INDICATION
     Dosage: 5 MILLIGRAM
     Route: 065
  3. CLOZARIL [Suspect]
     Active Substance: CLOZAPINE
     Indication: SCHIZOPHRENIA
     Dosage: 75 MILLIGRAM DAILY;  (NIGHT)
     Route: 048
     Dates: start: 20090707, end: 20210621
  4. PREGABALIN. [Suspect]
     Active Substance: PREGABALIN
     Indication: ANXIETY
     Dosage: 50 MILLIGRAM DAILY;
     Route: 065
  5. BISOPROLOL [Suspect]
     Active Substance: BISOPROLOL
     Indication: PRODUCT USED FOR UNKNOWN INDICATION
     Dosage: 5 MILLIGRAM
     Route: 065
  6. LATANOPROST. [Suspect]
     Active Substance: LATANOPROST
     Indication: PRODUCT USED FOR UNKNOWN INDICATION
     Dosage: UNK
     Route: 065
  7. ARIPIPRAZOLE. [Suspect]
     Active Substance: ARIPIPRAZOLE
     Indication: PSYCHOTIC DISORDER
     Dosage: 30 MILLIGRAM
     Route: 048
  8. EPLERENONE. [Suspect]
     Active Substance: EPLERENONE
     Indication: PRODUCT USED FOR UNKNOWN INDICATION
     Dosage: 25 MILLIGRAM
     Route: 065

REACTIONS (1)
  - Cardiomyopathy [Recovering/Resolving]

NARRATIVE: CASE EVENT DATE: 2017
